FAERS Safety Report 11072065 (Version 2)
Quarter: 2015Q3

REPORT INFORMATION
  Report Type: Report from Study
  Country: BR (occurrence: BR)
  Receive Date: 20150428
  Receipt Date: 20150706
  Transmission Date: 20151125
  Serious: Yes (Hospitalization, Other)
  Sender: FDA-Public Use
  Company Number: PHHY2015BR046662

PATIENT
  Age: 89 Year
  Sex: Female
  Weight: 58 kg

DRUGS (2)
  1. EXELON PATCH [Suspect]
     Active Substance: RIVASTIGMINE
     Indication: DEMENTIA ALZHEIMER^S TYPE
     Dosage: 1 DF, QD (18MG/10CM2, 9.5 MG DAILY)
     Route: 062
     Dates: end: 201403
  2. EXELON PATCH [Suspect]
     Active Substance: RIVASTIGMINE
     Dosage: PATCH 15 (CM2) OR CONTAINS 27 MG RIVASTIGMINE BASE
     Route: 062
     Dates: start: 201404

REACTIONS (11)
  - Condition aggravated [Unknown]
  - Confusional state [Recovered/Resolved]
  - Nosocomial infection [Recovered/Resolved]
  - Gait disturbance [Not Recovered/Not Resolved]
  - Dehydration [Recovered/Resolved]
  - Klebsiella infection [Unknown]
  - Colitis [Recovered/Resolved]
  - Dementia Alzheimer^s type [Unknown]
  - Disorientation [Unknown]
  - Diarrhoea [Recovered/Resolved]
  - Osteoarthritis [Unknown]

NARRATIVE: CASE EVENT DATE: 201410
